FAERS Safety Report 12659162 (Version 28)
Quarter: 2021Q1

REPORT INFORMATION
  Report Type: Spontaneous
  Country: US (occurrence: US)
  Receive Date: 20160817
  Receipt Date: 20210107
  Transmission Date: 20210419
  Serious: Yes (Life-Threatening, Hospitalization, Other)
  Sender: FDA-Public Use
  Company Number: US-PFIZER INC-2016366847

PATIENT
  Age: 68 Year
  Sex: Female
  Weight: 79 kg

DRUGS (44)
  1. LYRICA [Suspect]
     Active Substance: PREGABALIN
     Dosage: 75 MG, EVERY 4 HRS, (EVERY SIX HOURS)
     Route: 048
  2. LYRICA [Suspect]
     Active Substance: PREGABALIN
     Dosage: 150 MG, 3X/DAY
     Route: 048
  3. CYANOCOBALAMIN. [Concomitant]
     Active Substance: CYANOCOBALAMIN
     Dosage: 1000 UG
     Route: 030
     Dates: start: 20160405
  4. CYANOCOBALAMIN. [Concomitant]
     Active Substance: CYANOCOBALAMIN
     Dosage: 1000 UG
     Route: 030
     Dates: start: 20160726
  5. PROTONIX [Concomitant]
     Active Substance: PANTOPRAZOLE SODIUM
     Indication: ABDOMINAL DISCOMFORT
     Dosage: 40 MG, 1X/DAY
     Route: 048
     Dates: start: 20140318
  6. ZANTAC [Concomitant]
     Active Substance: RANITIDINE HYDROCHLORIDE
     Indication: HYPERSENSITIVITY
     Dosage: UNK
  7. LYRICA [Suspect]
     Active Substance: PREGABALIN
     Dosage: 50 MG, 3X/DAY
     Route: 048
     Dates: start: 20130507
  8. LYRICA [Suspect]
     Active Substance: PREGABALIN
     Dosage: 75 MG, AS NEEDED
     Route: 048
     Dates: start: 20150923
  9. LYRICA [Suspect]
     Active Substance: PREGABALIN
     Dosage: 75 MG, EVERY 4 HRS [HOW OFTEN DEPENDING ON HOW SHE SLEPT FROM THE TIME SHE WAKES]
  10. CYANOCOBALAMIN. [Concomitant]
     Active Substance: CYANOCOBALAMIN
     Dosage: 1 ML, MONTHLY
     Route: 030
     Dates: start: 20170719
  11. PROCTOZONE HC [Concomitant]
     Active Substance: HYDROCORTISONE
     Dosage: UNK, AS NEEDED
     Route: 054
     Dates: start: 20090716
  12. SYMBICORT [Concomitant]
     Active Substance: BUDESONIDE\FORMOTEROL FUMARATE DIHYDRATE
     Dosage: 1 DF, 2X/DAY (BUDESONIDE: 80MCG/ACT/FORMOTEROL FUMARATE: 4.5MCG/ACT)
     Route: 055
     Dates: start: 20130222
  13. XOPENEX HFA [Concomitant]
     Active Substance: LEVALBUTEROL TARTRATE
     Dosage: UNK, AS NEEDED (45 MCG/ACT INHALATION)
     Dates: start: 20150204
  14. ZYRTEC [Concomitant]
     Active Substance: CETIRIZINE HYDROCHLORIDE
     Indication: HYPERSENSITIVITY
     Dosage: UNK
     Dates: start: 2006
  15. ZYRTEC [Concomitant]
     Active Substance: CETIRIZINE HYDROCHLORIDE
     Dosage: 10 MG, 1X/DAY
     Route: 048
     Dates: start: 20130808
  16. STOOL SOFTENER (DOCUSATE) [Concomitant]
     Active Substance: DOCUSATE
     Dosage: UNK
  17. LYRICA [Suspect]
     Active Substance: PREGABALIN
     Dosage: 200 MG, DAILY
     Route: 048
  18. ALPRAZOLAM. [Concomitant]
     Active Substance: ALPRAZOLAM
     Dosage: 1 MG, AS NEEDED
     Route: 048
     Dates: start: 2006
  19. CYANOCOBALAMIN. [Concomitant]
     Active Substance: CYANOCOBALAMIN
     Dosage: 1000 UG
     Route: 030
     Dates: start: 20160712
  20. NITROSTAT [Concomitant]
     Active Substance: NITROGLYCERIN
     Indication: CHEST PAIN
     Dosage: UNK, AS NEEDED
     Dates: start: 2006
  21. LYRICA [Suspect]
     Active Substance: PREGABALIN
     Indication: TRIGEMINAL NEURALGIA
     Dosage: 75 MG, EVERY 4 HRS
     Dates: start: 2003
  22. SYMBICORT [Concomitant]
     Active Substance: BUDESONIDE\FORMOTEROL FUMARATE DIHYDRATE
     Dosage: 1 DF, 2X/DAY (160?4.5 MCG/ACT INHALATION AEROSOL, INHALE 1 PUFF TWICE A DAY)
     Route: 055
     Dates: start: 20170709
  23. XOPENEX HFA [Concomitant]
     Active Substance: LEVALBUTEROL TARTRATE
     Dosage: UNK
     Dates: start: 2010
  24. NORTRIPTYLINE HCL [Concomitant]
     Active Substance: NORTRIPTYLINE HYDROCHLORIDE
     Dosage: 25 MG, 2X/DAY
     Route: 048
     Dates: start: 20161026
  25. XOPENEX [Concomitant]
     Active Substance: LEVALBUTEROL HYDROCHLORIDE
     Indication: ASTHMA
     Dosage: UNK, AS NEEDED
     Route: 055
     Dates: start: 20100304
  26. ASPIRIN (E.C.) [Concomitant]
     Active Substance: ASPIRIN
     Dosage: 81 MG, AS NEEDED
     Route: 048
     Dates: start: 20170612
  27. XANAX [Concomitant]
     Active Substance: ALPRAZOLAM
     Indication: SENSORY DISTURBANCE
     Dosage: 1 MG
  28. LYRICA [Suspect]
     Active Substance: PREGABALIN
     Dosage: 300 MG, DAILY
     Route: 048
  29. LYRICA [Suspect]
     Active Substance: PREGABALIN
     Dosage: 150 MG, 3X/DAY
     Route: 048
  30. ULTRAM [Concomitant]
     Active Substance: TRAMADOL HYDROCHLORIDE
     Dosage: 50 MG, AS NEEDED
     Route: 048
     Dates: start: 20150923
  31. ACETAMINOPHEN W/HYDROCODONE [Concomitant]
     Active Substance: ACETAMINOPHEN\HYDROCODONE
     Dosage: 0.5 MG, AS NEEDED
     Route: 048
     Dates: start: 20170612
  32. XANAX [Concomitant]
     Active Substance: ALPRAZOLAM
     Indication: TRIGEMINAL NEURALGIA
  33. LYRICA [Suspect]
     Active Substance: PREGABALIN
     Dosage: 75 MG
  34. CYANOCOBALAMIN. [Concomitant]
     Active Substance: CYANOCOBALAMIN
     Dosage: UNK
     Dates: start: 2004
  35. NITROSTAT [Concomitant]
     Active Substance: NITROGLYCERIN
     Dosage: 0.4 MG, AS NEEDED (1 TABLET UNDER THE TONGUE EVERY 5 MINUTES FOR UP TO 3 DOSES AS NEEDED )
     Route: 060
     Dates: start: 20151119
  36. PROCTOZONE HC [Concomitant]
     Active Substance: HYDROCORTISONE
     Dosage: UNK
     Dates: start: 2008, end: 2008
  37. LYRICA [Suspect]
     Active Substance: PREGABALIN
     Indication: CEREBRAL DISORDER
     Dosage: 75 MG, (4 TO 5 TIMES A DAY)
     Dates: start: 200605
  38. LYRICA [Suspect]
     Active Substance: PREGABALIN
     Dosage: UNK
     Route: 048
  39. LYRICA [Suspect]
     Active Substance: PREGABALIN
     Dosage: 150 MG, 3X/DAY
     Route: 048
     Dates: start: 20161228
  40. LYRICA [Suspect]
     Active Substance: PREGABALIN
     Dosage: 75 MG, EVERY 4 HRS
     Route: 048
  41. CYANOCOBALAMIN. [Concomitant]
     Active Substance: CYANOCOBALAMIN
     Dosage: 1000 UG
     Route: 030
     Dates: start: 20160628
  42. PYRIDIUM [Concomitant]
     Active Substance: PHENAZOPYRIDINE
     Dosage: 100 MG, 2X/DAY
     Route: 048
     Dates: start: 20120515
  43. ULTRAM [Concomitant]
     Active Substance: TRAMADOL HYDROCHLORIDE
     Indication: PAIN
     Dosage: UNK
     Dates: start: 2006, end: 2006
  44. MULTAQ [Concomitant]
     Active Substance: DRONEDARONE
     Indication: CARDIAC DISORDER
     Dosage: UNK, 1X/DAY

REACTIONS (49)
  - Bronchitis [Recovered/Resolved]
  - Cataract [Unknown]
  - Lower limb fracture [Unknown]
  - Tooth disorder [Unknown]
  - Paraesthesia [Not Recovered/Not Resolved]
  - Emphysema [Unknown]
  - Drug dependence [Not Recovered/Not Resolved]
  - Upper limb fracture [Recovering/Resolving]
  - Condition aggravated [Not Recovered/Not Resolved]
  - Lip swelling [Not Recovered/Not Resolved]
  - Balance disorder [Not Recovered/Not Resolved]
  - Body height decreased [Not Recovered/Not Resolved]
  - Trigeminal neuralgia [Unknown]
  - Eye irritation [Unknown]
  - Feeling abnormal [Not Recovered/Not Resolved]
  - Myocardial infarction [Unknown]
  - Fall [Not Recovered/Not Resolved]
  - Vision blurred [Not Recovered/Not Resolved]
  - Speech disorder [Not Recovered/Not Resolved]
  - Neuralgia [Unknown]
  - Nocturia [Unknown]
  - Paralysis [Recovered/Resolved]
  - Facial paralysis [Not Recovered/Not Resolved]
  - Arrhythmia [Unknown]
  - Peripheral swelling [Not Recovered/Not Resolved]
  - Knee deformity [Unknown]
  - Hallucination [Recovered/Resolved]
  - Drug ineffective [Unknown]
  - Lung disorder [Unknown]
  - Insomnia [Unknown]
  - Headache [Unknown]
  - Drug tolerance [Unknown]
  - Eye swelling [Not Recovered/Not Resolved]
  - Pain [Not Recovered/Not Resolved]
  - Dermatitis diaper [Unknown]
  - Swollen tongue [Not Recovered/Not Resolved]
  - Eating disorder [Not Recovered/Not Resolved]
  - Swelling [Not Recovered/Not Resolved]
  - Weight decreased [Unknown]
  - Burning sensation [Unknown]
  - Hypoaesthesia [Unknown]
  - Thinking abnormal [Unknown]
  - Pain in extremity [Not Recovered/Not Resolved]
  - Dizziness [Not Recovered/Not Resolved]
  - Asthma [Recovered/Resolved]
  - Cerebral disorder [Not Recovered/Not Resolved]
  - Disease progression [Unknown]
  - Illness [Unknown]
  - Emotional disorder [Unknown]

NARRATIVE: CASE EVENT DATE: 2006
